FAERS Safety Report 5032032-7 (Version None)
Quarter: 2006Q2

REPORT INFORMATION
  Report Type: 
  Country: None (occurrence: None)
  Receive Date: 20060616
  Receipt Date: 20060606
  Transmission Date: 20061013
  Serious: Yes (Other)
  Sender: FDA-Public Use
  Company Number: B0427272A

PATIENT
  Age: 55 Year
  Sex: Male

DRUGS (2)
  1. LAMICTAL [Suspect]
     Indication: EPILEPSY
     Dosage: SEE DOSAGE TEXT
  2. CARBAMAZEPINE [Concomitant]

REACTIONS (4)
  - AGGRESSION [None]
  - EXCESSIVE MASTURBATION [None]
  - OBSESSIVE THOUGHTS [None]
  - SPONTANEOUS PENILE ERECTION [None]
